FAERS Safety Report 7675130-1 (Version None)
Quarter: 2011Q3

REPORT INFORMATION
  Report Type: 
  Country: None (occurrence: None)
  Receive Date: 20110810
  Receipt Date: 20110803
  Transmission Date: 20111222
  Serious: Yes (Hospitalization)
  Sender: FDA-Public Use
  Company Number: FR-MERCK-1108FRA00021

PATIENT
  Age: 45 Year
  Sex: Female

DRUGS (9)
  1. ALBUTEROL SULFATE [Suspect]
     Route: 065
  2. PRAZEPAM [Suspect]
     Route: 048
  3. SINGULAIR [Suspect]
     Route: 048
  4. MIANSERIN HYDROCHLORIDE [Suspect]
     Route: 048
     Dates: end: 20100902
  5. CLOMIPRAMINE HYDROCHLORIDE [Suspect]
     Route: 048
     Dates: end: 20100827
  6. LEVOCETIRIZINE DIHYCHLORIDE [Suspect]
     Route: 048
  7. CLONAZEPAM [Suspect]
     Route: 048
     Dates: start: 20100827, end: 20100830
  8. CARBAMAZEPINE [Suspect]
     Route: 048
     Dates: end: 20100901
  9. ALPRAZOLAM [Suspect]
     Route: 048
     Dates: start: 20100821, end: 20100830

REACTIONS (1)
  - CYTOLYTIC HEPATITIS [None]
